FAERS Safety Report 9043002 (Version 1)
Quarter: 2013Q1

REPORT INFORMATION
  Report Type: Report from Study
  Country: US (occurrence: US)
  Receive Date: 20130129
  Receipt Date: 20130129
  Transmission Date: 20140127
  Serious: No
  Sender: FDA-Public Use
  Company Number: US-ABBOTT-12P-163-0912509-00

PATIENT
  Age: 49 Year
  Sex: Female

DRUGS (7)
  1. HUMIRA 40 MG/0.8 ML PEN [Suspect]
     Indication: PSORIASIS
     Dates: start: 201106
  2. HUMIRA 40 MG/0.8 ML PEN [Suspect]
     Indication: PSORIATIC ARTHROPATHY
  3. HUMIRA 40 MG/0.8 ML PEN [Suspect]
     Indication: RHEUMATOID ARTHRITIS
  4. METHOTREXATE [Concomitant]
     Indication: PRODUCT USED FOR UNKNOWN INDICATION
     Dosage: 4 TABS EVERY WEEK
  5. LISINOPRIL [Concomitant]
     Indication: HYPERTENSION
  6. HCTZ [Concomitant]
     Indication: PRODUCT USED FOR UNKNOWN INDICATION
  7. WATER PILL [Concomitant]
     Indication: HYPERTENSION
     Dosage: DAILY
     Route: 048

REACTIONS (1)
  - Injection site pain [Recovered/Resolved]
